FAERS Safety Report 9898281 (Version 1)
Quarter: 2014Q1

REPORT INFORMATION
  Report Type: Spontaneous
  Country: US (occurrence: US)
  Receive Date: 20140214
  Receipt Date: 20140214
  Transmission Date: 20141002
  Serious: No
  Sender: FDA-Public Use
  Company Number: US-GILEAD-2011-0042613

PATIENT
  Age: 65 Year
  Sex: Female

DRUGS (1)
  1. LETAIRIS [Suspect]
     Indication: PRODUCT USED FOR UNKNOWN INDICATION
     Route: 048
     Dates: start: 20110712

REACTIONS (8)
  - Mass [Unknown]
  - Dizziness [Unknown]
  - Unevaluable event [Unknown]
  - Unevaluable event [Unknown]
  - Constipation [Unknown]
  - Headache [Unknown]
  - Abdominal pain upper [Unknown]
  - Local swelling [Unknown]
